FAERS Safety Report 22309906 (Version 1)
Quarter: 2023Q2

REPORT INFORMATION
  Report Type: Spontaneous
  Country: US (occurrence: None)
  Receive Date: 20230510
  Receipt Date: 20230510
  Transmission Date: 20230721
  Serious: Yes (Life-Threatening, Hospitalization)
  Sender: FDA-Public Use
  Company Number: None

PATIENT
  Age: 25 Year
  Sex: Male
  Weight: 95.85 kg

DRUGS (11)
  1. MOTEGRITY [Suspect]
     Active Substance: PRUCALOPRIDE SUCCINATE
     Indication: Constipation
     Dosage: OTHER QUANTITY : 1 TABLET(S);?FREQUENCY : DAILY;?
     Route: 048
     Dates: start: 20230501, end: 20230507
  2. DEXMETHYLPHENIDATE [Concomitant]
     Active Substance: DEXMETHYLPHENIDATE
  3. GUANFACINE [Concomitant]
     Active Substance: GUANFACINE
  4. PANTOPRAZOLE [Concomitant]
     Active Substance: PANTOPRAZOLE
  5. CAPLYTA [Concomitant]
     Active Substance: LUMATEPERONE
  6. MOTEGRITY [Concomitant]
     Active Substance: PRUCALOPRIDE SUCCINATE
  7. ZOFRAN [Concomitant]
     Active Substance: ONDANSETRON HYDROCHLORIDE
  8. EPIPEN [Concomitant]
     Active Substance: EPINEPHRINE
  9. MAGNESIUM CITRATE [Concomitant]
     Active Substance: MAGNESIUM CITRATE
  10. BISACODYL [Concomitant]
     Active Substance: BISACODYL
  11. MILK OF MAGNESIA [Concomitant]
     Active Substance: MAGNESIUM HYDROXIDE

REACTIONS (10)
  - Agitation [None]
  - Anger [None]
  - Mood swings [None]
  - Aggression [None]
  - Confusional state [None]
  - Suicidal ideation [None]
  - Physical assault [None]
  - Intentional self-injury [None]
  - Feeling abnormal [None]
  - Aggression [None]

NARRATIVE: CASE EVENT DATE: 20230508
